FAERS Safety Report 20208388 (Version 1)
Quarter: 2021Q4

REPORT INFORMATION
  Report Type: Spontaneous
  Country: IT (occurrence: IT)
  Receive Date: 20211220
  Receipt Date: 20211220
  Transmission Date: 20220303
  Serious: Yes (Other)
  Sender: FDA-Public Use
  Company Number: IT-JNJFOC-20211232004

PATIENT
  Age: 27 Year
  Sex: Female
  Weight: 55 kg

DRUGS (2)
  1. TOPAMAX [Suspect]
     Active Substance: TOPIRAMATE
     Indication: Product used for unknown indication
     Route: 048
  2. DELORAZEPAM [Suspect]
     Active Substance: DELORAZEPAM
     Indication: Product used for unknown indication
     Route: 048

REACTIONS (3)
  - Intentional self-injury [Unknown]
  - Intentional overdose [Unknown]
  - Sluggishness [Unknown]
